FAERS Safety Report 6702875-X (Version None)
Quarter: 2010Q2

REPORT INFORMATION
  Report Type: 
  Country: None (occurrence: None)
  Receive Date: 20100429
  Receipt Date: 20100419
  Transmission Date: 20101027
  Serious: Yes (Hospitalization)
  Sender: FDA-Public Use
  Company Number: ES-ABBOTT-10P-144-0639508-00

PATIENT
  Age: 60 Year
  Sex: Male

DRUGS (4)
  1. ADALIMUMAB [Suspect]
     Indication: RHEUMATOID ARTHRITIS
     Dates: start: 20060101
  2. METHOTREXATE [Concomitant]
     Indication: RHEUMATOID ARTHRITIS
     Route: 048
  3. METHOTREXATE [Concomitant]
  4. PREDNISOLONE [Concomitant]

REACTIONS (2)
  - HISTIOCYTOSIS HAEMATOPHAGIC [None]
  - VISCERAL LEISHMANIASIS [None]
